FAERS Safety Report 4861635-5 (Version None)
Quarter: 2005Q4

REPORT INFORMATION
  Report Type: 
  Country: None (occurrence: None)
  Receive Date: 20051130
  Receipt Date: 20050404
  Transmission Date: 20060501
  Serious: Yes (Hospitalization)
  Sender: FDA-Public Use
  Company Number: 200510661BWH

PATIENT
  Age: 31 Year
  Sex: Female

DRUGS (5)
  1. CIPRO [Suspect]
     Indication: ABDOMINAL PAIN UPPER
     Dates: start: 20041001
  2. LEXAPRO [Suspect]
     Indication: ANXIETY
     Dosage: 30 MG, QD, ORAL
     Route: 048
     Dates: start: 20030101, end: 20041001
  3. LEXAPRO [Suspect]
     Indication: DEPRESSION
     Dosage: 30 MG, QD, ORAL
     Route: 048
     Dates: start: 20030101, end: 20041001
  4. LEXAPRO [Suspect]
     Indication: OBSESSIVE-COMPULSIVE DISORDER
     Dosage: 30 MG, QD, ORAL
     Route: 048
     Dates: start: 20030101, end: 20041001
  5. FLAGYL [Suspect]
     Indication: ABDOMINAL PAIN UPPER
     Dates: start: 20041001

REACTIONS (2)
  - HYPOAESTHESIA [None]
  - PANIC ATTACK [None]
